FAERS Safety Report 8841172 (Version 2)
Quarter: 2012Q4

REPORT INFORMATION
  Report Type: 
  Country: US (occurrence: US)
  Receive Date: 20121015
  Receipt Date: 20121113
  Transmission Date: 20130627
  Serious: No
  Sender: FDA-Public Use
  Company Number: US-PFIZER INC-2012253417

PATIENT
  Age: 75 Year
  Sex: Male

DRUGS (2)
  1. INLYTA [Suspect]
     Indication: RENAL CELL CARCINOMA
     Dosage: 3 mg, 2x/day
     Dates: start: 20121002
  2. INLYTA [Suspect]
     Dosage: 3 mg, 2x/day
     Dates: start: 20121026

REACTIONS (6)
  - Diarrhoea [Recovered/Resolved]
  - Fatigue [Unknown]
  - Mood altered [Unknown]
  - Dysphonia [Unknown]
  - Nausea [Unknown]
  - Constipation [Unknown]
